FAERS Safety Report 7103533-2 (Version None)
Quarter: 2010Q4

REPORT INFORMATION
  Report Type: 
  Country: None (occurrence: None)
  Receive Date: 20101115
  Receipt Date: 20100610
  Transmission Date: 20110411
  Serious: No
  Sender: FDA-Public Use
  Company Number: US-KINGPHARMUSA00001-K200901016

PATIENT
  Age: 50 Year
  Sex: Female
  Weight: 63.492 kg

DRUGS (4)
  1. LEVOXYL [Suspect]
     Indication: HYPOTHYROIDISM
     Dosage: 150 MCG, QD
     Route: 048
     Dates: start: 20000101
  2. LEVOXYL [Suspect]
     Dosage: 150 MCG, QD
     Route: 048
     Dates: start: 20100601, end: 20100701
  3. LEVOXYL [Suspect]
     Dosage: 150 MCG, QD
     Route: 048
     Dates: start: 20100701, end: 20100801
  4. LEVOXYL [Suspect]
     Dosage: 150 MCG, QD
     Route: 048
     Dates: start: 20100801

REACTIONS (29)
  - ALOPECIA [None]
  - ANAEMIA [None]
  - ANXIETY [None]
  - ASTHENIA [None]
  - CHEST DISCOMFORT [None]
  - CONSTIPATION [None]
  - DRUG INEFFECTIVE [None]
  - DRY MOUTH [None]
  - DYSPHONIA [None]
  - DYSPNOEA [None]
  - EYE SWELLING [None]
  - FATIGUE [None]
  - FEELING COLD [None]
  - FLATULENCE [None]
  - HYPERSOMNIA [None]
  - HYPERTHYROIDISM [None]
  - HYPOTHYROIDISM [None]
  - JOINT SWELLING [None]
  - MALAISE [None]
  - MEMORY IMPAIRMENT [None]
  - MENSTRUATION IRREGULAR [None]
  - MUSCLE SPASMS [None]
  - MUSCULAR WEAKNESS [None]
  - MUSCULOSKELETAL STIFFNESS [None]
  - OEDEMA PERIPHERAL [None]
  - ORAL DISCOMFORT [None]
  - PALLOR [None]
  - SWELLING FACE [None]
  - WEIGHT INCREASED [None]
